FAERS Safety Report 14843397 (Version 1)
Quarter: 2018Q2

REPORT INFORMATION
  Report Type: Spontaneous
  Country: JP (occurrence: JP)
  Receive Date: 20180503
  Receipt Date: 20180503
  Transmission Date: 20180711
  Serious: Yes (Other)
  Sender: FDA-Public Use
  Company Number: JP-PFIZER INC-2018171285

PATIENT

DRUGS (2)
  1. EFFEXOR [Suspect]
     Active Substance: VENLAFAXINE HYDROCHLORIDE
     Dosage: 150 MG (2-75 MG CAPSULES), DAILY
     Route: 048
  2. EFFEXOR [Suspect]
     Active Substance: VENLAFAXINE HYDROCHLORIDE
     Dosage: 20-30 CAPSULES, UNK
     Route: 048

REACTIONS (6)
  - Nausea [Recovering/Resolving]
  - Suicide attempt [Recovered/Resolved]
  - Headache [Recovering/Resolving]
  - Intentional overdose [Recovered/Resolved]
  - Withdrawal syndrome [Recovering/Resolving]
  - Dizziness [Recovering/Resolving]
